FAERS Safety Report 7970039-8 (Version None)
Quarter: 2011Q4

REPORT INFORMATION
  Report Type: 
  Country: None (occurrence: None)
  Receive Date: 20111122
  Receipt Date: 20110801
  Transmission Date: 20120403
  Serious: No
  Sender: FDA-Public Use
  Company Number: PHHY2011US47446

PATIENT
  Age: 49 Year
  Sex: Female

DRUGS (13)
  1. CELEBREX [Concomitant]
  2. ADDERALL 10 [Concomitant]
  3. GILENYA [Suspect]
     Indication: MULTIPLE SCLEROSIS
     Dosage: 0.5 MG, DAILY, ORAL
     Route: 048
     Dates: start: 20110306
  4. LIPITOR [Concomitant]
  5. VITAMIN D [Concomitant]
  6. LISINOPRIL [Concomitant]
  7. LYRICA [Concomitant]
  8. COREG [Concomitant]
  9. LIPITOR [Concomitant]
  10. ULTRAM [Concomitant]
  11. LEXAPRO [Concomitant]
  12. NIFEDIAC (NIFEDIPINE) [Concomitant]
  13. ROPINIROLE [Concomitant]

REACTIONS (3)
  - VISUAL IMPAIRMENT [None]
  - FATIGUE [None]
  - COUGH [None]
